FAERS Safety Report 6416531-9 (Version None)
Quarter: 2009Q4

REPORT INFORMATION
  Report Type: 
  Country: None (occurrence: None)
  Receive Date: 20091027
  Receipt Date: 20091022
  Transmission Date: 20100525
  Serious: Yes (Life-Threatening)
  Sender: FDA-Public Use
  Company Number: PHEH2009US14102

PATIENT
  Sex: Male

DRUGS (5)
  1. EXJADE [Suspect]
     Indication: MYELODYSPLASTIC SYNDROME
     Dosage: 2000 MG, QD
     Route: 048
     Dates: start: 20090518, end: 20090617
  2. HYDREA [Concomitant]
     Indication: MYELODYSPLASTIC SYNDROME
     Dosage: 3G DAY ON DAYS OFF REVLIMID
     Route: 048
  3. HYDREA [Concomitant]
     Indication: HYPERSPLENISM
  4. REVLIMID [Concomitant]
     Indication: MYELODYSPLASTIC SYNDROME
     Dosage: 20 MG DAYS 1-21 Q28
  5. REVLIMID [Concomitant]
     Indication: HYPERSPLENISM

REACTIONS (4)
  - DRUG INEFFECTIVE [None]
  - MALIGNANT NEOPLASM PROGRESSION [None]
  - MYELOFIBROSIS [None]
  - NAUSEA [None]
